FAERS Safety Report 15391938 (Version 1)
Quarter: 2018Q3

REPORT INFORMATION
  Report Type: Spontaneous
  Country: US (occurrence: US)
  Receive Date: 20180917
  Receipt Date: 20180917
  Transmission Date: 20181010
  Serious: No
  Sender: FDA-Public Use
  Company Number: US-PFIZER INC-2018368670

PATIENT
  Sex: Male

DRUGS (3)
  1. GABAPENTIN. [Suspect]
     Active Substance: GABAPENTIN
     Indication: PAIN IN EXTREMITY
     Dosage: 250 MG, 4X/DAY (250MG CAPSULE FOUR TIMES DAILY)
  2. TRAMADOL. [Suspect]
     Active Substance: TRAMADOL
     Indication: PAIN
     Dosage: 50MG TABLETS TWO TABLETS BY MOUTH FOUR TIMES AS NEEDED)
     Route: 048
  3. GABAPENTIN. [Suspect]
     Active Substance: GABAPENTIN
     Dosage: 800 MG, 3X/DAY
     Dates: end: 201808

REACTIONS (3)
  - Drug ineffective for unapproved indication [Unknown]
  - Vertigo [Recovered/Resolved]
  - Memory impairment [Not Recovered/Not Resolved]
